FAERS Safety Report 7224827-6 (Version None)
Quarter: 2011Q1

REPORT INFORMATION
  Report Type: 
  Country: None (occurrence: None)
  Receive Date: 20110113
  Receipt Date: 20110111
  Transmission Date: 20110831
  Serious: Yes (Death)
  Sender: FDA-Public Use
  Company Number: DE-ROCHE-615394

PATIENT
  Sex: Female
  Weight: 80 kg

DRUGS (2)
  1. ARIMIDEX [Suspect]
     Route: 048
     Dates: start: 20080822
  2. TRASTUZUMAB [Suspect]
     Route: 042
     Dates: start: 20080912, end: 20080912

REACTIONS (2)
  - ANEURYSM [None]
  - SUBARACHNOID HAEMORRHAGE [None]
